FAERS Safety Report 24589258 (Version 2)
Quarter: 2024Q4

REPORT INFORMATION
  Report Type: Spontaneous
  Country: PK (occurrence: PK)
  Receive Date: 20241107
  Receipt Date: 20241210
  Transmission Date: 20250115
  Serious: Yes (Other)
  Sender: PFIZER
  Company Number: PK-PFIZER INC-PV202400142197

PATIENT
  Age: 75 Year
  Sex: Female

DRUGS (5)
  1. IBRANCE [Suspect]
     Active Substance: PALBOCICLIB
     Indication: Breast cancer
     Dosage: 75 MG, CYCLIC (OD, 21DAYS ON + 7 DAYS OFF)
     Route: 048
     Dates: start: 202406
  2. IBRANCE [Suspect]
     Active Substance: PALBOCICLIB
     Dosage: 100 MG, 21 DAYS ON AND REST 1 WEEK
     Route: 048
  3. FULVESTRANT [Concomitant]
     Active Substance: FULVESTRANT
     Dosage: 300 MG, MONTHLY
     Route: 058
  4. KETOCAL [Concomitant]
     Dosage: UNK, 2X/DAY
  5. TAPENTADOL HYDROCHLORIDE [Concomitant]
     Active Substance: TAPENTADOL HYDROCHLORIDE
     Dosage: 75 MG, 2X/DAY

REACTIONS (4)
  - Chronic kidney disease [Unknown]
  - Pain [Unknown]
  - Irritable bowel syndrome [Unknown]
  - White blood cell count decreased [Unknown]
